FAERS Safety Report 14122898 (Version 1)
Quarter: 2017Q4

REPORT INFORMATION
  Report Type: Spontaneous
  Country: IT (occurrence: IT)
  Receive Date: 20171025
  Receipt Date: 20171025
  Transmission Date: 20180321
  Serious: Yes (Hospitalization)
  Sender: FDA-Public Use
  Company Number: IT-009507513-1005ITA00021

PATIENT
  Age: 70 Year
  Sex: Female

DRUGS (11)
  1. ASPIRIN. [Concomitant]
     Active Substance: ASPIRIN
     Dosage: 100 MG, UNK
     Route: 048
  2. FUROSEMIDE. [Suspect]
     Active Substance: FUROSEMIDE
     Dosage: 100 MG, ORAL, DAILY
     Route: 048
  3. SPIRIVA [Concomitant]
     Active Substance: TIOTROPIUM BROMIDE MONOHYDRATE
  4. LOSARTAN POTASSIUM TABLETS [Suspect]
     Active Substance: LOSARTAN POTASSIUM
     Indication: HYPERTENSION
     Dosage: 25 MG, ORAL, DAILY
     Route: 048
     Dates: start: 20090101, end: 20100315
  5. OMEPRAZOLE. [Concomitant]
     Active Substance: OMEPRAZOLE
     Dosage: 20 MG, UNK
     Route: 048
  6. FUROSEMIDE. [Suspect]
     Active Substance: FUROSEMIDE
     Indication: HYPERTENSION
     Dosage: 100 MG, ORAL, DAILY
     Route: 048
     Dates: start: 20090101, end: 20100316
  7. AMIODARONE SANDOZ [Suspect]
     Active Substance: AMIODARONE
     Indication: HYPERTENSION
     Dosage: 1 DOSE UNIT, ORAL, DAILY
     Route: 048
     Dates: start: 20090601, end: 20100317
  8. COUMADIN [Concomitant]
     Active Substance: WARFARIN SODIUM
  9. SERETIDE [Concomitant]
     Active Substance: FLUTICASONE PROPIONATE\SALMETEROL XINAFOATE
  10. LOSARTAN POTASSIUM TABLETS [Suspect]
     Active Substance: LOSARTAN POTASSIUM
     Dosage: 25 MG, ORAL, DAILY
     Route: 048
  11. AMIODARONE SANDOZ [Suspect]
     Active Substance: AMIODARONE
     Dosage: 1 DOSE UNIT, ORAL, DAILY
     Route: 048

REACTIONS (1)
  - Hypotension [Recovered/Resolved]

NARRATIVE: CASE EVENT DATE: 20100317
